FAERS Safety Report 8499121-6 (Version None)
Quarter: 2012Q2

REPORT INFORMATION
  Report Type: 
  Country: None (occurrence: None)
  Receive Date: 20120405
  Receipt Date: 20100302
  Transmission Date: 20120825
  Serious: Yes (Other)
  Sender: FDA-Public Use
  Company Number: PHHY2010US13028

PATIENT
  Age: 80 Year
  Sex: Female
  Weight: 45.4 kg

DRUGS (1)
  1. RECLAST [Suspect]
     Indication: SENILE OSTEOPOROSIS
     Dosage: 5 MG/100 ML ONCE PER YEAR, INTRAVENOUS
     Route: 042
     Dates: start: 20100122

REACTIONS (3)
  - FLUSHING [None]
  - BLOOD PRESSURE INCREASED [None]
  - FATIGUE [None]
